FAERS Safety Report 7642776-6 (Version None)
Quarter: 2011Q3

REPORT INFORMATION
  Report Type: 
  Country: None (occurrence: None)
  Receive Date: 20110728
  Receipt Date: 20110720
  Transmission Date: 20111222
  Serious: Yes (Other)
  Sender: FDA-Public Use
  Company Number: PHHY2011CA65986

PATIENT
  Sex: Female

DRUGS (1)
  1. LEUPROLIDE ACETATE [Suspect]
     Indication: PRECOCIOUS PUBERTY
     Dosage: UNK

REACTIONS (3)
  - OVERWEIGHT [None]
  - EPIPHYSIOLYSIS [None]
  - OESTRADIOL DECREASED [None]
